FAERS Safety Report 24416305 (Version 3)
Quarter: 2024Q4

REPORT INFORMATION
  Report Type: Spontaneous
  Country: PY (occurrence: PY)
  Receive Date: 20241009
  Receipt Date: 20241030
  Transmission Date: 20250115
  Serious: Yes (Hospitalization, Disabling, Other)
  Sender: ROCHE
  Company Number: PY-ROCHE-10000097506

PATIENT
  Age: 61 Year
  Sex: Female

DRUGS (5)
  1. ACTEMRA [Suspect]
     Active Substance: TOCILIZUMAB
     Indication: Rheumatoid arthritis
     Dosage: DOSE FORM: 162MG/0.9ML
     Route: 058
     Dates: start: 20231127, end: 20240930
  2. MORPHINE [Concomitant]
     Active Substance: MORPHINE
     Indication: Pain
  3. LEFLUNOMIDE [Concomitant]
     Active Substance: LEFLUNOMIDE
  4. PREDNISONE [Concomitant]
     Active Substance: PREDNISONE
     Dates: end: 20241018
  5. FOLIC ACID [Concomitant]
     Active Substance: FOLIC ACID
     Dosage: TOOK ON MONDAY, WEDNESDAY, FRIDAY
     Dates: end: 20241018

REACTIONS (6)
  - Gait inability [Recovering/Resolving]
  - Synovial cyst [Recovering/Resolving]
  - Peripheral swelling [Recovering/Resolving]
  - Pain in extremity [Recovering/Resolving]
  - Arthralgia [Recovering/Resolving]
  - Drug ineffective [Unknown]

NARRATIVE: CASE EVENT DATE: 20240801
